FAERS Safety Report 5918904-7 (Version None)
Quarter: 2008Q4

REPORT INFORMATION
  Report Type: 
  Country: None (occurrence: None)
  Receive Date: 20081015
  Receipt Date: 20081010
  Transmission Date: 20090506
  Serious: Yes (Hospitalization)
  Sender: FDA-Public Use
  Company Number: CO-AVENTIS-200819550GDDC

PATIENT
  Age: 52 Year
  Sex: Female
  Weight: 91 kg

DRUGS (4)
  1. GLIMEPIRIDE [Suspect]
     Indication: TYPE 2 DIABETES MELLITUS
     Route: 048
     Dates: start: 20060313, end: 20061015
  2. GLIMEPIRIDE [Suspect]
  3. GLIMEPIRIDE [Suspect]
  4. GLIMEPIRIDE [Suspect]

REACTIONS (3)
  - ASPHYXIA [None]
  - ATRIAL FIBRILLATION [None]
  - TACHYCARDIA [None]
